FAERS Safety Report 9348612 (Version 1)
Quarter: 2013Q2

REPORT INFORMATION
  Report Type: Report from Study
  Country: CA (occurrence: CA)
  Receive Date: 20130614
  Receipt Date: 20130614
  Transmission Date: 20140414
  Serious: Yes (Other)
  Sender: FDA-Public Use
  Company Number: CA-JNJFOC-20130607079

PATIENT
  Sex: Male
  Weight: 160 kg

DRUGS (3)
  1. REMICADE [Suspect]
     Indication: PSORIASIS
     Route: 042
     Dates: start: 201211
  2. REMICADE [Suspect]
     Indication: PSORIASIS
     Route: 042
     Dates: start: 200812
  3. METHOTREXATE [Concomitant]
     Route: 065
     Dates: start: 2009

REACTIONS (2)
  - Arthritis [Unknown]
  - Drug effect decreased [Unknown]
